FAERS Safety Report 8558166 (Version 2)
Quarter: 2012Q4

REPORT INFORMATION
  Report Type: Report from Study
  Country: SE (occurrence: SE)
  Receive Date: 20120511
  Receipt Date: 20120914
  Transmission Date: 20130627
  Serious: Yes (Hospitalization, Other)
  Sender: FDA-Public Use
  Company Number: SE-UCBSA-056893

PATIENT
  Age: 39 Year
  Sex: Female

DRUGS (5)
  1. CIMZIA [Suspect]
     Indication: RHEUMATOID ARTHRITIS
     Dosage: 200,200,MG
     Dates: start: 20111014, end: 20111115
  2. KETOPROFEN [Suspect]
     Indication: RHEUMATOID ARTHRITIS
     Dates: start: 2011, end: 20111215
  3. KETOPROFEN [Suspect]
     Indication: RHEUMATOID ARTHRITIS
     Dates: start: 20040712, end: 2011
  4. METHOTREXATE [Concomitant]
     Indication: RHEUMATOID ARTHRITIS
     Dosage: 15,15 MG
     Dates: start: 20041017, end: 20120119
  5. REMICADE [Concomitant]
     Indication: RHEUMATOID ARTHRITIS
     Dates: end: 201110

REACTIONS (3)
  - Colitis ulcerative [Unknown]
  - Malaise [Unknown]
  - Drug ineffective [Unknown]
